FAERS Safety Report 5052016-2 (Version None)
Quarter: 2006Q3

REPORT INFORMATION
  Report Type: 
  Country: None (occurrence: None)
  Receive Date: 20060711
  Receipt Date: 20060627
  Transmission Date: 20061208
  Serious: Yes (Hospitalization)
  Sender: FDA-Public Use
  Company Number: A-US2006-12517

PATIENT
  Age: 20 Year
  Sex: Female
  Weight: 80 kg

DRUGS (10)
  1. TRACLEER [Suspect]
     Indication: PULMONARY HYPERTENSION
     Dosage: 125 MG, BID, ORAL
     Route: 048
     Dates: start: 20041201
  2. PREVACID [Concomitant]
  3. KLOR-CON [Concomitant]
  4. LASIX [Concomitant]
  5. TOPAMAX [Concomitant]
  6. PERIACTIN [Concomitant]
  7. COUMADIN [Concomitant]
  8. INSPRA [Concomitant]
  9. ZOVIRAX [Concomitant]
  10. OXYGEN (OXYGEN) [Concomitant]

REACTIONS (14)
  - COXSACKIE VIRAL INFECTION [None]
  - ERYTHEMA [None]
  - FULL BLOOD COUNT DECREASED [None]
  - HERPES SIMPLEX [None]
  - INTERNATIONAL NORMALISED RATIO INCREASED [None]
  - NEUTROPENIA [None]
  - OEDEMA PERIPHERAL [None]
  - ORAL FUNGAL INFECTION [None]
  - PARVOVIRUS INFECTION [None]
  - PLATELET COUNT DECREASED [None]
  - PYREXIA [None]
  - RASH [None]
  - SEPSIS [None]
  - VIRAL INFECTION [None]
